FAERS Safety Report 12199706 (Version 7)
Quarter: 2017Q1

REPORT INFORMATION
  Report Type: Spontaneous
  Country: CA (occurrence: CA)
  Receive Date: 20160322
  Receipt Date: 20170111
  Transmission Date: 20170428
  Serious: Yes (Other)
  Sender: FDA-Public Use
  Company Number: CA-PFIZER INC-2016059538

PATIENT
  Age: 56 Year
  Sex: Female

DRUGS (6)
  1. XELJANZ [Suspect]
     Active Substance: TOFACITINIB CITRATE
     Dosage: 5 MG, 2X/DAY
     Route: 048
     Dates: start: 20160320
  2. METFORMIN [Concomitant]
     Active Substance: METFORMIN HYDROCHLORIDE
     Dosage: 1000 MG
     Route: 048
  3. XELJANZ [Suspect]
     Active Substance: TOFACITINIB CITRATE
     Indication: RHEUMATOID ARTHRITIS
     Dosage: 5 MG, 2X/DAY
     Route: 048
     Dates: start: 20160128, end: 2016
  4. PREDNISONE. [Concomitant]
     Active Substance: PREDNISONE
     Dosage: UNK
  5. ADVIL [Concomitant]
     Active Substance: IBUPROFEN
     Dosage: UNK
  6. BIAXIN [Concomitant]
     Active Substance: CLARITHROMYCIN
     Dosage: 125MG/5MG SUSPENSION

REACTIONS (8)
  - Lower respiratory tract infection [Recovering/Resolving]
  - Glaucoma [Recovering/Resolving]
  - Nasopharyngitis [Recovering/Resolving]
  - Oropharyngeal pain [Unknown]
  - Diarrhoea [Recovering/Resolving]
  - Activities of daily living impaired [Recovering/Resolving]
  - Influenza [Unknown]
  - Headache [Recovered/Resolved]

NARRATIVE: CASE EVENT DATE: 2016
